FAERS Safety Report 10224217 (Version 1)
Quarter: 2014Q2

REPORT INFORMATION
  Report Type: Spontaneous
  Country: US (occurrence: None)
  Receive Date: 20140605
  Receipt Date: 20140605
  Transmission Date: 20141212
  Serious: Yes (Death, Hospitalization, Other)
  Sender: FDA-Public Use
  Company Number: VAL_03153_2014

PATIENT
  Age: 37 Year
  Sex: Female

DRUGS (6)
  1. METOPROLOL [Suspect]
     Indication: PERIPARTUM CARDIOMYOPATHY
     Dosage: DF
  2. METHYLDOPA [Suspect]
     Indication: HYPERTENSION
  3. FUROSEMIDE [Suspect]
     Indication: PRODUCT USED FOR UNKNOWN INDICATION
     Dosage: DF
  4. CLOPIDOGREL [Suspect]
     Indication: PRODUCT USED FOR UNKNOWN INDICATION
  5. HYDROMORPHONE [Suspect]
     Indication: PRODUCT USED FOR UNKNOWN INDICATION
     Dosage: DF
  6. ASPIRIN [Suspect]
     Indication: PRODUCT USED FOR UNKNOWN INDICATION
     Dosage: DF

REACTIONS (17)
  - Peripartum cardiomyopathy [None]
  - Acute respiratory distress syndrome [None]
  - Hypertension [None]
  - Hyperhidrosis [None]
  - Breech presentation [None]
  - Sinus tachycardia [None]
  - Bundle branch block left [None]
  - Caesarean section [None]
  - Foetal distress syndrome [None]
  - Hypoxia [None]
  - Heart sounds abnormal [None]
  - Cardiac murmur [None]
  - Left ventricular dysfunction [None]
  - Pulmonary hypertension [None]
  - Cardiac failure [None]
  - Cardiac death [None]
  - Exposure during pregnancy [None]
